FAERS Safety Report 17537050 (Version 1)
Quarter: 2020Q1

REPORT INFORMATION
  Report Type: Spontaneous
  Country: US (occurrence: US)
  Receive Date: 20200313
  Receipt Date: 20200313
  Transmission Date: 20200409
  Serious: Yes (Life-Threatening, Hospitalization, Other)
  Sender: FDA-Public Use
  Company Number: US-ACCORD-175142

PATIENT
  Age: 74 Year
  Sex: Female

DRUGS (2)
  1. GEMCITABINE/GEMCITABINE HYDROCHLORIDE [Suspect]
     Active Substance: GEMCITABINE\GEMCITABINE HYDROCHLORIDE
     Indication: UTERINE LEIOMYOSARCOMA
     Dosage: ON CYCLE DAYS 1 AND 8
     Route: 042
     Dates: start: 2019
  2. DOCETAXEL. [Suspect]
     Active Substance: DOCETAXEL
     Indication: UTERINE LEIOMYOSARCOMA
     Dosage: ON CYCLE DAY 8 EVERY 21 DAYS, DOSE REDUCTION TO 75 MG/M2 STARTED ON CYCLE 3 DAY 8
     Route: 042
     Dates: start: 2019

REACTIONS (4)
  - Neutropenia [Unknown]
  - Off label use [Unknown]
  - Pneumonitis [Recovering/Resolving]
  - Respiratory failure [Recovering/Resolving]

NARRATIVE: CASE EVENT DATE: 2019
